FAERS Safety Report 6913541-X (Version None)
Quarter: 2010Q3

REPORT INFORMATION
  Report Type: 
  Country: None (occurrence: None)
  Receive Date: 20100809
  Receipt Date: 20100726
  Transmission Date: 20110219
  Serious: Yes (Other)
  Sender: FDA-Public Use
  Company Number: FR-ELI_LILLY_AND_COMPANY-FR201007006608

PATIENT
  Age: 50 Year
  Sex: Female

DRUGS (5)
  1. PROZAC [Suspect]
     Indication: DEPRESSION
     Dosage: UNK, UNKNOWN
     Route: 048
  2. LEXOMIL [Concomitant]
     Route: 048
  3. CLONAZEPAM [Concomitant]
     Route: 048
  4. TRILEPTAL [Concomitant]
  5. ZAMUDOL [Concomitant]

REACTIONS (4)
  - HALLUCINATION [None]
  - PHYSICAL ASSAULT [None]
  - RETROGRADE AMNESIA [None]
  - SUICIDE ATTEMPT [None]
